FAERS Safety Report 24060329 (Version 1)
Quarter: 2024Q3

REPORT INFORMATION
  Report Type: Spontaneous
  Country: CN (occurrence: CN)
  Receive Date: 20240708
  Receipt Date: 20240708
  Transmission Date: 20241017
  Serious: Yes (Hospitalization, Other)
  Sender: EPIC PHARM
  Company Number: CN-EPICPHARMA-CN-2024EPCLIT00800

PATIENT
  Age: 14 Year
  Sex: Female

DRUGS (11)
  1. VORICONAZOLE [Suspect]
     Active Substance: VORICONAZOLE
     Indication: Fungal infection
     Route: 065
  2. CYCLOPHOSPHAMIDE [Suspect]
     Active Substance: CYCLOPHOSPHAMIDE
     Indication: Acute lymphocytic leukaemia
     Route: 065
  3. VINCRISTINE [Suspect]
     Active Substance: VINCRISTINE
     Indication: Acute lymphocytic leukaemia
     Route: 065
  4. DAUNORUBICIN [Suspect]
     Active Substance: DAUNORUBICIN
     Indication: Acute lymphocytic leukaemia
     Route: 065
  5. ASPARAGINASE [Suspect]
     Active Substance: ASPARAGINASE
     Indication: Acute lymphocytic leukaemia
     Route: 065
  6. PREDNISONE [Suspect]
     Active Substance: PREDNISONE
     Indication: Acute lymphocytic leukaemia
     Route: 048
  7. DEXAMETHASONE [Suspect]
     Active Substance: DEXAMETHASONE
     Indication: Acute lymphocytic leukaemia
     Route: 065
  8. MEROPENEM [Suspect]
     Active Substance: MEROPENEM
     Indication: Fungal infection
     Route: 065
  9. LINEZOLID [Suspect]
     Active Substance: LINEZOLID
     Indication: Fungal infection
     Route: 065
  10. CASPOFUNGIN [Concomitant]
     Active Substance: CASPOFUNGIN
     Indication: Fungal infection
     Route: 065
  11. POSACONAZOLE [Concomitant]
     Active Substance: POSACONAZOLE
     Indication: Fungal infection
     Route: 065

REACTIONS (1)
  - Disseminated mucormycosis [Unknown]
